FAERS Safety Report 13548999 (Version 3)
Quarter: 2017Q2

REPORT INFORMATION
  Report Type: Spontaneous
  Country: US (occurrence: US)
  Receive Date: 20170516
  Receipt Date: 20170616
  Transmission Date: 20170830
  Serious: No
  Sender: FDA-Public Use
  Company Number: US-PFIZER INC-2017213082

PATIENT
  Age: 43 Year
  Sex: Male

DRUGS (2)
  1. CYCLOSPORIN [Concomitant]
     Active Substance: CYCLOSPORINE
     Indication: ECZEMA
     Dosage: 200 MG, DAILY
  2. EUCRISA [Suspect]
     Active Substance: CRISABOROLE
     Indication: ECZEMA
     Dosage: TWICE DAILY
     Route: 061
     Dates: start: 20170310, end: 201704

REACTIONS (4)
  - Burning sensation [Recovering/Resolving]
  - Drug intolerance [Recovering/Resolving]
  - Drug ineffective [Unknown]
  - Pain [Recovering/Resolving]

NARRATIVE: CASE EVENT DATE: 201703
